FAERS Safety Report 4990147-3 (Version None)
Quarter: 2006Q2

REPORT INFORMATION
  Report Type: 
  Country: None (occurrence: None)
  Receive Date: 20060503
  Receipt Date: 20051004
  Transmission Date: 20061013
  Serious: Yes (Hospitalization)
  Sender: FDA-Public Use
  Company Number: US-MERCK-0510USA03485

PATIENT
  Age: 60 Year
  Sex: Female
  Weight: 62 kg

DRUGS (1)
  1. VIOXX [Suspect]
     Indication: BACK PAIN
     Route: 048
     Dates: start: 20001101, end: 20030401

REACTIONS (9)
  - BRONCHITIS [None]
  - BULLOUS LUNG DISEASE [None]
  - CEREBRAL THROMBOSIS [None]
  - DIARRHOEA [None]
  - EAR PAIN [None]
  - HEADACHE [None]
  - MITRAL VALVE INCOMPETENCE [None]
  - PECTUS EXCAVATUM [None]
  - TRICUSPID VALVE INCOMPETENCE [None]
